FAERS Safety Report 9890436 (Version 1)
Quarter: 2014Q1

REPORT INFORMATION
  Report Type: Spontaneous
  Country: RU (occurrence: RU)
  Receive Date: 20140212
  Receipt Date: 20140212
  Transmission Date: 20141002
  Serious: Yes (Death, Life-Threatening, Other)
  Sender: FDA-Public Use
  Company Number: RU-ASTRAZENECA-2014SE09697

PATIENT
  Age: 28633 Day
  Sex: Male
  Weight: 93 kg

DRUGS (8)
  1. BRILINTA [Suspect]
     Indication: MYOCARDIAL INFARCTION
     Route: 048
     Dates: start: 20130625
  2. CLEXANE [Concomitant]
     Indication: ANTICOAGULANT THERAPY
     Route: 058
     Dates: start: 20130625
  3. ASPIRIN [Concomitant]
     Indication: ANTICOAGULANT THERAPY
  4. OMEZ [Concomitant]
     Indication: HAEMORRHAGE PROPHYLAXIS
     Route: 048
     Dates: start: 20130625
  5. FUROSEMIDE [Concomitant]
     Indication: PULMONARY OEDEMA
     Route: 048
     Dates: start: 20130625
  6. LASIX [Concomitant]
     Indication: PULMONARY OEDEMA
     Route: 048
     Dates: start: 20130625
  7. ENALAPRIL [Concomitant]
     Indication: ANGIOTENSIN CONVERTING ENZYME INCREASED
     Route: 048
     Dates: start: 20130625
  8. STREPTOKINASE [Concomitant]

REACTIONS (5)
  - Myocardial infarction [Fatal]
  - Pulmonary oedema [Fatal]
  - Cardiac failure acute [Fatal]
  - Haemoglobin decreased [Unknown]
  - Rectal haemorrhage [Not Recovered/Not Resolved]
